FAERS Safety Report 13046662 (Version 3)
Quarter: 2017Q1

REPORT INFORMATION
  Report Type: Spontaneous
  Country: FR (occurrence: FR)
  Receive Date: 20161220
  Receipt Date: 20170320
  Transmission Date: 20170428
  Serious: Yes (Death, Hospitalization, Other)
  Sender: FDA-Public Use
  Company Number: FR-ALEXION-A201609918

PATIENT
  Age: 80 Year
  Sex: Female
  Weight: 55 kg

DRUGS (11)
  1. EXJADE [Suspect]
     Active Substance: DEFERASIROX
     Indication: CHELATION THERAPY
     Dosage: UNK, QD
     Route: 065
  2. LASILIX                            /00032601/ [Concomitant]
     Active Substance: FUROSEMIDE
     Indication: PRODUCT USED FOR UNKNOWN INDICATION
     Dosage: 40 MG, QD
     Route: 065
  3. NEORECORMON [Concomitant]
     Active Substance: ERYTHROPOIETIN
     Indication: PRODUCT USED FOR UNKNOWN INDICATION
     Route: 065
  4. SOLIRIS [Suspect]
     Active Substance: ECULIZUMAB
     Dosage: 900 MG, Q2W
     Dates: start: 20160423
  5. SOLIRIS [Suspect]
     Active Substance: ECULIZUMAB
     Indication: PAROXYSMAL NOCTURNAL HAEMOGLOBINURIA
     Dosage: UNK
     Route: 042
     Dates: start: 20140423
  6. NEBIVOLOL. [Concomitant]
     Active Substance: NEBIVOLOL
     Indication: PRODUCT USED FOR UNKNOWN INDICATION
     Dosage: 1.25 MG, QD
     Route: 065
  7. DIFFU K [Concomitant]
     Active Substance: POTASSIUM CHLORIDE
     Indication: PRODUCT USED FOR UNKNOWN INDICATION
     Dosage: UNK, 1 CAPSULE MORNINGS
     Route: 065
  8. ORACILLIN                          /00001802/ [Concomitant]
     Active Substance: PENICILLIN V POTASSIUM
     Indication: PROPHYLAXIS
     Route: 065
  9. CORDARONE [Concomitant]
     Active Substance: AMIODARONE HYDROCHLORIDE
     Indication: PRODUCT USED FOR UNKNOWN INDICATION
     Dosage: ONE AND A HALF, QD
     Route: 065
  10. INEXIUM                            /01479302/ [Concomitant]
     Active Substance: ESOMEPRAZOLE MAGNESIUM
     Indication: PRODUCT USED FOR UNKNOWN INDICATION
     Dosage: 40 MG, QD
     Route: 065
  11. PREVISCAN                          /00261401/ [Concomitant]
     Active Substance: PENTOXIFYLLINE
     Indication: PRODUCT USED FOR UNKNOWN INDICATION
     Dosage: UNK, DEPENDING ON INR
     Route: 065

REACTIONS (25)
  - Cholecystitis [Unknown]
  - Escherichia infection [Unknown]
  - Liver function test abnormal [Unknown]
  - Multiple organ dysfunction syndrome [Fatal]
  - General physical health deterioration [Unknown]
  - Confusional state [Unknown]
  - Anuria [Unknown]
  - Hypotension [Unknown]
  - Unresponsive to stimuli [Unknown]
  - Shock [Unknown]
  - Encephalopathy [Unknown]
  - Vomiting [Unknown]
  - Abdominal pain [Unknown]
  - Lactic acidosis [Fatal]
  - Altered state of consciousness [Unknown]
  - Pulmonary oedema [Unknown]
  - Coma [Unknown]
  - Arterial disorder [Unknown]
  - Urine output decreased [Unknown]
  - Intestinal ischaemia [Fatal]
  - Acute respiratory distress syndrome [Unknown]
  - Hypothermia [Unknown]
  - Nausea [Unknown]
  - Hypertension [Unknown]
  - Lung disorder [Unknown]

NARRATIVE: CASE EVENT DATE: 201610
